FAERS Safety Report 7525137-X (Version None)
Quarter: 2011Q2

REPORT INFORMATION
  Report Type: 
  Country: None (occurrence: None)
  Receive Date: 20110526
  Receipt Date: 20110519
  Transmission Date: 20111010
  Serious: Yes (Death, Hospitalization)
  Sender: FDA-Public Use
  Company Number: 2010AC000152

PATIENT
  Age: 81 Year
  Sex: Male

DRUGS (11)
  1. PROPAFENONE HCL [Concomitant]
  2. ALTACE [Concomitant]
  3. PROTONIX [Concomitant]
  4. TOPROL-XL [Concomitant]
  5. DIGOXIN [Suspect]
     Dosage: 0.125 MG, QD, PO
     Route: 048
     Dates: start: 20000605, end: 20080101
  6. DIGOXIN [Suspect]
     Dosage: 0.125 MG, QD
     Dates: start: 20080216, end: 20080302
  7. PROZAC [Concomitant]
  8. FUROSEMIDE [Concomitant]
  9. RYTHMOL [Concomitant]
  10. ZESTRO; [Concomitant]
  11. ASPIRIN [Concomitant]

REACTIONS (28)
  - RENAL DISORDER [None]
  - ATRIAL FIBRILLATION [None]
  - CHRONIC OBSTRUCTIVE PULMONARY DISEASE [None]
  - BRADYCARDIA [None]
  - PERIPHERAL VASCULAR DISORDER [None]
  - CARDIOMEGALY [None]
  - DEMENTIA ALZHEIMER'S TYPE [None]
  - DIZZINESS [None]
  - ASTHENIA [None]
  - MITRAL VALVE INCOMPETENCE [None]
  - LEFT ATRIAL DILATATION [None]
  - OSTEOMYELITIS [None]
  - ANXIETY [None]
  - ARTHRITIS [None]
  - ATRIAL FLUTTER [None]
  - VOMITING [None]
  - CEREBROVASCULAR ACCIDENT [None]
  - DIABETES MELLITUS [None]
  - DEPRESSION [None]
  - URINARY INCONTINENCE [None]
  - AORTIC STENOSIS [None]
  - UNEVALUABLE EVENT [None]
  - SOMNOLENCE [None]
  - CAROTID BRUIT [None]
  - VENTRICULAR HYPERTROPHY [None]
  - SYNCOPE [None]
  - MYOCARDIAL INFARCTION [None]
  - PROSTATE CANCER [None]
